FAERS Safety Report 12556375 (Version 3)
Quarter: 2016Q3

REPORT INFORMATION
  Report Type: Spontaneous
  Country: US (occurrence: US)
  Receive Date: 20160714
  Receipt Date: 20160912
  Transmission Date: 20161109
  Serious: Yes (Hospitalization)
  Sender: FDA-Public Use
  Company Number: US-PFIZER INC-2016244276

PATIENT
  Sex: Male
  Weight: 102.4 kg

DRUGS (3)
  1. SEROQUEL XR [Suspect]
     Active Substance: QUETIAPINE FUMARATE
     Indication: MOOD ALTERED
     Dosage: 300 MG, 1X/DAY
     Dates: start: 201502
  2. SEROQUEL XR [Suspect]
     Active Substance: QUETIAPINE FUMARATE
     Indication: SOMATIC SYMPTOM DISORDER
  3. ATIVAN [Suspect]
     Active Substance: LORAZEPAM
     Indication: ANXIETY
     Dosage: 2MG IN MORNING AND 4MG AT BED TIME
     Dates: start: 2015

REACTIONS (2)
  - Cerebral disorder [Unknown]
  - Ammonia increased [Unknown]

NARRATIVE: CASE EVENT DATE: 2015
